FAERS Safety Report 4455596-0 (Version None)
Quarter: 2004Q3

REPORT INFORMATION
  Report Type: 
  Country: None (occurrence: None)
  Receive Date: 20040922
  Receipt Date: 20040917
  Transmission Date: 20050211
  Serious: Yes (Life-Threatening, Hospitalization)
  Sender: FDA-Public Use
  Company Number: 200419192GDDC

PATIENT
  Age: 6 Year
  Sex: Male

DRUGS (1)
  1. MINIRIN ^FERRING^ [Suspect]
     Indication: ENURESIS
     Route: 045
     Dates: start: 20040311, end: 20040706

REACTIONS (4)
  - HYPONATRAEMIA [None]
  - MUSCLE CRAMP [None]
  - SOMNOLENCE [None]
  - VOMITING [None]
